FAERS Safety Report 20938714 (Version 1)
Quarter: 2022Q2

REPORT INFORMATION
  Report Type: Spontaneous
  Country: US (occurrence: None)
  Receive Date: 20220608
  Receipt Date: 20220608
  Transmission Date: 20220721
  Serious: Yes (Hospitalization)
  Sender: FDA-Public Use
  Company Number: None

PATIENT
  Age: 61 Year
  Sex: Female

DRUGS (1)
  1. IVERMECTIN [Suspect]
     Active Substance: IVERMECTIN
     Indication: COVID-19 prophylaxis
     Route: 048
     Dates: start: 20220405, end: 20220510

REACTIONS (3)
  - Jaundice [None]
  - Chromaturia [None]
  - Faeces discoloured [None]

NARRATIVE: CASE EVENT DATE: 20220517
